FAERS Safety Report 10145190 (Version 1)
Quarter: 2014Q2

REPORT INFORMATION
  Report Type: Spontaneous
  Country: US (occurrence: US)
  Receive Date: 20140501
  Receipt Date: 20140501
  Transmission Date: 20141212
  Serious: No
  Sender: FDA-Public Use
  Company Number: US-BIOGENIDEC-2014BI036754

PATIENT
  Age: 46 Year
  Sex: Female

DRUGS (5)
  1. TECFIDERA [Suspect]
     Indication: MULTIPLE SCLEROSIS
     Dates: start: 201310
  2. TECFIDERA [Suspect]
     Indication: MULTIPLE SCLEROSIS
  3. TECFIDERA [Suspect]
     Indication: MULTIPLE SCLEROSIS
  4. TECFIDERA [Suspect]
     Indication: MULTIPLE SCLEROSIS
  5. AVONEX [Concomitant]
     Indication: MULTIPLE SCLEROSIS
     Route: 030

REACTIONS (5)
  - Prescribed underdose [Recovered/Resolved]
  - Intentional product misuse [Not Recovered/Not Resolved]
  - Nausea [Recovered/Resolved]
  - Vomiting [Recovered/Resolved]
  - Diarrhoea [Recovered/Resolved]
